FAERS Safety Report 10231337 (Version 2)
Quarter: 2014Q3

REPORT INFORMATION
  Report Type: Spontaneous
  Country: PT (occurrence: PT)
  Receive Date: 20140611
  Receipt Date: 20140818
  Transmission Date: 20150326
  Serious: Yes (Other)
  Sender: FDA-Public Use
  Company Number: PT-009507513-1406PRT004409

PATIENT
  Age: 56 Year
  Sex: Male
  Weight: 62 kg

DRUGS (8)
  1. VICTRELIS [Suspect]
     Active Substance: BOCEPREVIR
     Dosage: 800 MG, TID
     Route: 048
     Dates: start: 201206, end: 201301
  2. TRAMADOL HYDROCHLORIDE. [Concomitant]
     Active Substance: TRAMADOL HYDROCHLORIDE
     Dosage: ON DEMAND
     Dates: start: 201205, end: 201304
  3. RIBAVIRIN. [Suspect]
     Active Substance: RIBAVIRIN
     Dosage: DAILY DOSE: 1000MG
     Route: 048
     Dates: start: 201205, end: 201304
  4. RIBAVIRIN. [Suspect]
     Active Substance: RIBAVIRIN
     Dosage: 600 MG, DAILY
     Route: 048
     Dates: start: 201304
  5. ACETAMINOPHEN. [Concomitant]
     Active Substance: ACETAMINOPHEN
     Dosage: UNK
     Dates: start: 201205, end: 201304
  6. PEGINTERFERON ALFA-2B [Suspect]
     Active Substance: PEGINTERFERON ALFA-2B
     Dosage: 100 ?G/WEEK
     Dates: start: 201205, end: 201304
  7. NAPROXEN. [Concomitant]
     Active Substance: NAPROXEN
     Dosage: UNK,
     Dates: start: 201205, end: 201304
  8. IBUPROFEN. [Concomitant]
     Active Substance: IBUPROFEN
     Dosage: UNK
     Dates: start: 201205, end: 201304

REACTIONS (3)
  - Anaemia [Recovered/Resolved]
  - Packed red blood cell transfusion [Recovered/Resolved]
  - Dysgeusia [Recovered/Resolved]

NARRATIVE: CASE EVENT DATE: 201207
